FAERS Safety Report 5147022-3 (Version None)
Quarter: 2006Q4

REPORT INFORMATION
  Report Type: 
  Country: None (occurrence: None)
  Receive Date: 20061109
  Receipt Date: 20061030
  Transmission Date: 20070319
  Serious: Yes (Other)
  Sender: FDA-Public Use
  Company Number: GB-ELI_LILLY_AND_COMPANY-GB200610005271

PATIENT
  Age: 67 Year
  Sex: Male

DRUGS (9)
  1. FLUOXETINE [Suspect]
     Indication: DEPRESSION
     Dosage: 20 MG, 2/D
  2. DIHYDROCODEINE BITARTRATE INJ [Concomitant]
     Dosage: 120 MG, 3/D
  3. ACETYLSALICYLIC ACID SRT [Concomitant]
     Dosage: 75 MG, DAILY (1/D)
  4. GLICLAZIDE [Concomitant]
     Dosage: 40 MG, 2/D
  5. METFORMIN HCL [Concomitant]
     Dosage: 1 G, 2/D
  6. PERINDOPRIL ERBUMINE [Concomitant]
     Dosage: 4 MG, DAILY (1/D)
  7. ROSIGLITAZONE [Concomitant]
     Dosage: 4 MG, 2/D
  8. SIMVASTATIN [Concomitant]
     Dosage: 20 MG, DAILY (1/D)
  9. TILDIEM [Concomitant]
     Dosage: 60 MG, 3/D

REACTIONS (9)
  - AGITATION [None]
  - ANGER [None]
  - CONFUSIONAL STATE [None]
  - DRUG WITHDRAWAL SYNDROME [None]
  - FEELING JITTERY [None]
  - HALLUCINATION, AUDITORY [None]
  - HALLUCINATION, VISUAL [None]
  - IRRITABILITY [None]
  - PSYCHOTIC DISORDER [None]
